FAERS Safety Report 6610929-1 (Version None)
Quarter: 2010Q1

REPORT INFORMATION
  Report Type: 
  Country: None (occurrence: None)
  Receive Date: 20100222
  Receipt Date: 20100211
  Transmission Date: 20100710
  Serious: No
  Sender: FDA-Public Use
  Company Number: 006870

PATIENT
  Sex: Female
  Weight: 59 kg

DRUGS (3)
  1. KEPPRA [Suspect]
     Indication: CONVULSION
     Dosage: (500 MG BID ORAL)
     Route: 048
     Dates: start: 20100106
  2. KEPPRA [Suspect]
     Indication: CONVULSION
     Dosage: (1500 MG QD ORAL)
     Route: 048
     Dates: start: 20091231, end: 20100106
  3. KEPPRA [Suspect]
     Indication: CONVULSION
     Dosage: (1500 MG QD ORAL)
     Route: 048
     Dates: start: 20091201, end: 20091231

REACTIONS (1)
  - PARTIAL SEIZURES [None]
